FAERS Safety Report 8331787-3 (Version None)
Quarter: 2012Q2

REPORT INFORMATION
  Report Type: 
  Country: None (occurrence: None)
  Receive Date: 20120502
  Receipt Date: 20120423
  Transmission Date: 20120825
  Serious: No
  Sender: FDA-Public Use
  Company Number: US-AMGEN-USASP2012025556

PATIENT
  Age: 78 Year
  Sex: Female

DRUGS (1)
  1. ENBREL [Suspect]
     Indication: RHEUMATOID ARTHRITIS
     Dosage: 50 MG, QWK
     Dates: start: 20040101

REACTIONS (10)
  - UPPER RESPIRATORY TRACT CONGESTION [None]
  - MOBILITY DECREASED [None]
  - COUGH [None]
  - SINUS CONGESTION [None]
  - NASOPHARYNGITIS [None]
  - RHEUMATOID ARTHRITIS [None]
  - DECREASED APPETITE [None]
  - FEELING ABNORMAL [None]
  - STRESS [None]
  - FATIGUE [None]
